FAERS Safety Report 15105841 (Version 2)
Quarter: 2018Q3

REPORT INFORMATION
  Report Type: Spontaneous
  Country: US (occurrence: US)
  Receive Date: 20180704
  Receipt Date: 20180716
  Transmission Date: 20181010
  Serious: Yes (Other)
  Sender: FDA-Public Use
  Company Number: US-TEVA-2018-US-920284

PATIENT
  Sex: Female

DRUGS (1)
  1. DULOXETINE. [Suspect]
     Active Substance: DULOXETINE
     Route: 065

REACTIONS (17)
  - Vision blurred [Unknown]
  - Ageusia [Unknown]
  - Anosmia [Unknown]
  - Feeling abnormal [Unknown]
  - Insomnia [Unknown]
  - Aphasia [Unknown]
  - Suicidal ideation [Unknown]
  - Drug ineffective [Unknown]
  - Hyperacusis [Unknown]
  - Photosensitivity reaction [Unknown]
  - Anhedonia [Unknown]
  - Brain injury [Unknown]
  - Fear [Unknown]
  - Withdrawal syndrome [Unknown]
  - Loss of personal independence in daily activities [Unknown]
  - Depression [Unknown]
  - Inappropriate affect [Unknown]

NARRATIVE: CASE EVENT DATE: 2013
